FAERS Safety Report 14448971 (Version 3)
Quarter: 2018Q2

REPORT INFORMATION
  Report Type: Spontaneous
  Country: US (occurrence: US)
  Receive Date: 20180126
  Receipt Date: 20180601
  Transmission Date: 20180711
  Serious: No
  Sender: FDA-Public Use
  Company Number: US-ACTELION-A-NJ2018-166611

PATIENT
  Age: 64 Year
  Sex: Female

DRUGS (1)
  1. OPSUMIT [Suspect]
     Active Substance: MACITENTAN
     Indication: PULMONARY ARTERIAL HYPERTENSION
     Dosage: 10 MG, QD
     Route: 048
     Dates: start: 20180111

REACTIONS (6)
  - Dyspepsia [Not Recovered/Not Resolved]
  - Condition aggravated [Unknown]
  - Headache [Recovering/Resolving]
  - Ocular sarcoidosis [Unknown]
  - Gastrooesophageal reflux disease [Unknown]
  - Dizziness [Recovering/Resolving]
